FAERS Safety Report 5405522-2 (Version None)
Quarter: 2007Q3

REPORT INFORMATION
  Report Type: 
  Country: None (occurrence: None)
  Receive Date: 20070803
  Receipt Date: 20070723
  Transmission Date: 20080115
  Serious: Yes (Other)
  Sender: FDA-Public Use
  Company Number: MX-PFIZER INC-2007061672

PATIENT
  Age: 36 Year
  Sex: Female
  Weight: 75 kg

DRUGS (1)
  1. EPAMIN INJECTION [Suspect]
     Indication: HEAD INJURY
     Route: 042

REACTIONS (3)
  - HYPERSENSITIVITY [None]
  - JAUNDICE [None]
  - MYCOSIS FUNGOIDES [None]
